FAERS Safety Report 4283733-X (Version None)
Quarter: 2004Q1

REPORT INFORMATION
  Report Type: 
  Country: None (occurrence: None)
  Receive Date: 20040129
  Receipt Date: 20040129
  Transmission Date: 20041129
  Serious: Yes (Hospitalization)
  Sender: FDA-Public Use
  Company Number: None

PATIENT
  Age: 82 Year
  Sex: Male
  Weight: 38.6918 kg

DRUGS (3)
  1. GEFITINIB 250 MG [Suspect]
     Indication: NON-SMALL CELL LUNG CANCER
     Dosage: 250 MG DAILY ORAL
     Route: 048
     Dates: start: 20030501, end: 20030916
  2. HYDROCODONE/ACETAMNINOPHEN [Concomitant]
  3. CLINDAMYCIN [Concomitant]

REACTIONS (9)
  - ANOREXIA [None]
  - ASTHENIA [None]
  - COUGH [None]
  - DYSPNOEA [None]
  - LUNG INFILTRATION [None]
  - OXYGEN SATURATION DECREASED [None]
  - PNEUMOCYSTIS CARINII PNEUMONIA [None]
  - PNEUMONITIS [None]
  - PYREXIA [None]
